FAERS Safety Report 8920194 (Version 2)
Quarter: 2013Q1

REPORT INFORMATION
  Report Type: Spontaneous
  Country: JP (occurrence: JP)
  Receive Date: 20121122
  Receipt Date: 20130325
  Transmission Date: 20140127
  Serious: Yes (Death)
  Sender: FDA-Public Use
  Company Number: JP-ROCHE-1157884

PATIENT
  Age: 81 Year
  Sex: Female
  Weight: 51 kg

DRUGS (11)
  1. AVASTIN [Suspect]
     Indication: COLON CANCER
     Route: 041
     Dates: start: 20120614, end: 20121019
  2. XELODA [Suspect]
     Indication: COLON CANCER METASTATIC
     Dosage: 2 WEEKS ADMINISTRATION AND 1 WEEK REST
     Route: 048
     Dates: start: 20120614, end: 20121101
  3. CARDENALIN [Concomitant]
     Indication: HYPERTENSION
     Route: 048
     Dates: end: 20121109
  4. LASIX [Concomitant]
     Indication: OEDEMA
     Route: 048
     Dates: start: 20120608, end: 20121109
  5. HYPEN [Concomitant]
     Indication: CANCER PAIN
     Route: 048
     Dates: start: 20120608, end: 20121109
  6. PYDOXAL [Concomitant]
     Indication: PROPHYLAXIS
     Route: 048
     Dates: start: 20120614, end: 20121019
  7. ALDACTONE A [Concomitant]
     Indication: OEDEMA
     Route: 048
     Dates: start: 20120817, end: 20121109
  8. NEXIUM [Concomitant]
     Indication: GASTROOESOPHAGEAL REFLUX DISEASE
     Route: 048
     Dates: start: 20121019, end: 20121109
  9. FOLIAMIN [Concomitant]
     Indication: FOLATE DEFICIENCY
     Route: 048
     Dates: start: 20121019, end: 20121109
  10. IRINOTECAN [Concomitant]
  11. OXALIPLATIN [Concomitant]

REACTIONS (4)
  - Peritonitis [Fatal]
  - Dementia [Unknown]
  - Gastrooesophageal reflux disease [Unknown]
  - Folate deficiency [Unknown]
